FAERS Safety Report 22883926 (Version 4)
Quarter: 2024Q3

REPORT INFORMATION
  Report Type: Spontaneous
  Country: AT (occurrence: AT)
  Receive Date: 20230830
  Receipt Date: 20240812
  Transmission Date: 20241017
  Serious: Yes (Hospitalization, Other)
  Sender: ACCORD
  Company Number: AT-Accord-374907

PATIENT
  Age: 34 Year
  Sex: Male

DRUGS (6)
  1. CLOZAPINE [Suspect]
     Active Substance: CLOZAPINE
     Indication: Schizoaffective disorder
  2. BUPROPION HYDROCHLORIDE [Suspect]
     Active Substance: BUPROPION HYDROCHLORIDE
     Indication: Schizoaffective disorder
  3. ARIPIPRAZOLE [Suspect]
     Active Substance: ARIPIPRAZOLE
     Indication: Product used for unknown indication
     Dates: start: 202209
  4. ZOLPIDEM [Suspect]
     Active Substance: ZOLPIDEM TARTRATE
     Indication: Sleep disorder
     Dosage: STRENGTH 10 MG
     Route: 048
     Dates: start: 20220920, end: 202209
  5. CARIPRAZINE [Suspect]
     Active Substance: CARIPRAZINE
     Indication: Schizoaffective disorder
     Dates: start: 202209
  6. DOXYCYCLINE [Concomitant]
     Active Substance: DOXYCYCLINE\DOXYCYCLINE HYCLATE
     Indication: Antibiotic prophylaxis
     Dates: start: 20220902, end: 20220923

REACTIONS (4)
  - Hallucinations, mixed [Recovered/Resolved]
  - Disorientation [Recovered/Resolved]
  - Delirium [Recovered/Resolved]
  - Anterograde amnesia [Recovered/Resolved]

NARRATIVE: CASE EVENT DATE: 20220920
